FAERS Safety Report 5694718-0 (Version None)
Quarter: 2008Q2

REPORT INFORMATION
  Report Type: 
  Country: None (occurrence: None)
  Receive Date: 20080404
  Receipt Date: 20080403
  Transmission Date: 20081010
  Serious: Yes (Death)
  Sender: FDA-Public Use
  Company Number: B0515133A

PATIENT
  Age: 83 Year
  Sex: Female

DRUGS (2)
  1. CEFTAZIDIME SODIUM [Suspect]
     Indication: URINARY TRACT INFECTION
     Route: 042
     Dates: start: 20070322, end: 20070331
  2. CIPROFLOXACIN [Suspect]
     Indication: URINARY TRACT INFECTION
     Route: 048
     Dates: start: 20070320, end: 20070327

REACTIONS (2)
  - CLOSTRIDIUM DIFFICILE COLITIS [None]
  - PYREXIA [None]
